FAERS Safety Report 7193687-4 (Version None)
Quarter: 2010Q4

REPORT INFORMATION
  Report Type: 
  Country: None (occurrence: None)
  Receive Date: 20101223
  Receipt Date: 20100909
  Transmission Date: 20110411
  Serious: No
  Sender: FDA-Public Use
  Company Number: US-AMGEN-KDL432797

PATIENT

DRUGS (13)
  1. ENBREL [Suspect]
     Indication: PSORIATIC ARTHROPATHY
     Dosage: 50 MG, QWK
     Route: 058
     Dates: start: 20050101
  2. ENBREL [Suspect]
     Indication: PSORIASIS
  3. LEVOTHYROXINE SODIUM [Concomitant]
     Dosage: UNK UNK, UNK
     Dates: start: 20080711
  4. MICARDIS HCT [Concomitant]
     Dosage: UNK UNK, UNK
     Dates: start: 20080923
  5. DESVENLAFAXINE [Concomitant]
  6. TRAMADOL [Concomitant]
     Dosage: UNK UNK, UNK
     Dates: start: 20080612
  7. METFORMIN [Concomitant]
     Dosage: UNK UNK, UNK
     Dates: start: 20080612
  8. GABAPENTIN [Concomitant]
     Dosage: UNK UNK, UNK
     Dates: start: 20100115
  9. FLUTICASONE/SALMETEROL [Concomitant]
     Dosage: UNK UNK, UNK
     Dates: start: 20100125
  10. SALBUTAMOL [Concomitant]
     Dosage: UNK UNK, UNK
     Dates: start: 20100115
  11. MELOXICAM [Concomitant]
     Dosage: UNK UNK, UNK
     Dates: start: 20090824, end: 20100128
  12. TRIAMCINOLONE [Concomitant]
     Dosage: UNK UNK, UNK
     Dates: start: 20080715
  13. RESLIN [Concomitant]
     Dosage: UNK UNK, UNK
     Dates: start: 20081027

REACTIONS (2)
  - PSORIASIS [None]
  - PSORIATIC ARTHROPATHY [None]
